FAERS Safety Report 5065346-5 (Version None)
Quarter: 2006Q3

REPORT INFORMATION
  Report Type: 
  Country: None (occurrence: None)
  Receive Date: 20060725
  Receipt Date: 20060714
  Transmission Date: 20061208
  Serious: Yes (Hospitalization)
  Sender: FDA-Public Use
  Company Number: E2020-00202-SPO-JP

PATIENT
  Sex: Male

DRUGS (3)
  1. ARICEPT [Suspect]
     Indication: DEMENTIA ALZHEIMER'S TYPE
     Dosage: 3 MG, 1 IN 1 D; ORAL, 5MG, 1 IN 1 D, ORAL
     Route: 048
     Dates: start: 20060301, end: 20060501
  2. ARICEPT [Suspect]
     Indication: DEMENTIA ALZHEIMER'S TYPE
     Dosage: 3 MG, 1 IN 1 D; ORAL, 5MG, 1 IN 1 D, ORAL
     Route: 048
     Dates: start: 20060501
  3. LEVOTHYROXINE SODIUM [Suspect]
     Indication: HYPOTHYROIDISM
     Dosage: 100 MCG, ORAL
     Route: 048

REACTIONS (3)
  - AGGRESSION [None]
  - ANGER [None]
  - DRUG INTERACTION [None]
